FAERS Safety Report 5373977-8 (Version None)
Quarter: 2007Q2

REPORT INFORMATION
  Report Type: 
  Country: None (occurrence: None)
  Receive Date: 20070628
  Receipt Date: 20070619
  Transmission Date: 20071010
  Serious: Yes (Death)
  Sender: FDA-Public Use
  Company Number: RO-ABBOTT-07P-135-0371952-00

PATIENT
  Age: 19 Year
  Sex: Female
  Weight: 58 kg

DRUGS (6)
  1. KALETRA [Suspect]
     Indication: HIV INFECTION
     Dosage: 800/50 MG
     Route: 048
     Dates: start: 20070428, end: 20070526
  2. LAMIVUDINE [Concomitant]
     Indication: HIV INFECTION
     Route: 048
     Dates: start: 20070428, end: 20070526
  3. ABACAVIR [Concomitant]
     Indication: HIV INFECTION
     Route: 048
     Dates: start: 20070428, end: 20070526
  4. AMPHOTERICYNE B [Concomitant]
     Indication: MENINGITIS
     Route: 042
     Dates: start: 20070503, end: 20070518
  5. MYCOMAX [Concomitant]
     Indication: MENINGITIS
     Route: 042
     Dates: start: 20070519, end: 20070526
  6. ERTAPENEM [Concomitant]
     Indication: KIDNEY INFECTION
     Route: 042
     Dates: start: 20070516, end: 20070526

REACTIONS (1)
  - ARRHYTHMIA [None]
